FAERS Safety Report 9154191 (Version 2)
Quarter: 2013Q2

REPORT INFORMATION
  Report Type: Spontaneous
  Country: US (occurrence: US)
  Receive Date: 20130311
  Receipt Date: 20130404
  Transmission Date: 20140414
  Serious: No
  Sender: FDA-Public Use
  Company Number: US-B.I. PHARMACEUTICALS,INC./RIDGEFIELD-2013-BI-05928BP

PATIENT
  Age: 61 Year
  Sex: Male
  Weight: 108.41 kg

DRUGS (1)
  1. JENTADUETO [Suspect]
     Indication: TYPE 2 DIABETES MELLITUS
     Route: 048
     Dates: start: 20130122, end: 20130227

REACTIONS (3)
  - Blood glucose increased [Recovered/Resolved]
  - Diplopia [Unknown]
  - Candida infection [Unknown]
